FAERS Safety Report 5932390-2 (Version None)
Quarter: 2008Q4

REPORT INFORMATION
  Report Type: 
  Country: None (occurrence: None)
  Receive Date: 20081028
  Receipt Date: 20081016
  Transmission Date: 20090506
  Serious: Yes (Life-Threatening, Hospitalization, Disabling, Other)
  Sender: FDA-Public Use
  Company Number: GB-AMGEN-UK314287

PATIENT
  Age: 63 Year
  Sex: Male
  Weight: 76.2 kg

DRUGS (20)
  1. NEUPOGEN [Suspect]
     Indication: NEUTROPENIA
     Route: 058
     Dates: start: 20080826, end: 20080917
  2. ALLOPURINOL [Concomitant]
     Route: 048
     Dates: start: 20080813, end: 20080818
  3. CLEXANE [Concomitant]
     Route: 058
     Dates: start: 20080917, end: 20080928
  4. CYCLOPHOSPHAMIDE [Concomitant]
     Route: 042
     Dates: start: 20080813, end: 20080813
  5. DOXORUBICIN HYDROCHLORIDE [Concomitant]
     Route: 042
     Dates: start: 20080813, end: 20080813
  6. GAVISCON [Concomitant]
     Route: 048
     Dates: start: 20080826, end: 20080826
  7. GENTAMICIN [Concomitant]
     Route: 042
  8. LANSOPRAZOLE [Concomitant]
     Route: 048
  9. METOCLOPRAMIDE [Concomitant]
     Route: 048
     Dates: start: 20080813, end: 20080818
  10. MOVICOL [Concomitant]
     Route: 048
     Dates: start: 20080824, end: 20080824
  11. ONDANSETRON [Concomitant]
     Route: 048
     Dates: start: 20080813, end: 20080818
  12. ACETAMINOPHEN [Concomitant]
     Route: 048
  13. PREDNISOLONE [Concomitant]
     Route: 048
     Dates: start: 20080813, end: 20080818
  14. RAMIPRIL [Concomitant]
     Route: 048
     Dates: end: 20080921
  15. RANITIDINE [Concomitant]
     Route: 048
     Dates: start: 20080813, end: 20080912
  16. RITUXIMAB [Concomitant]
     Route: 042
     Dates: start: 20080813, end: 20080813
  17. SENNA [Concomitant]
     Route: 048
  18. SIMVASTATIN [Concomitant]
     Route: 048
     Dates: end: 20080924
  19. TAZOCIN (LEDERLE) [Concomitant]
     Route: 042
     Dates: start: 20080823, end: 20080826
  20. VINCRISTINE [Concomitant]
     Route: 042
     Dates: start: 20080813, end: 20080813

REACTIONS (2)
  - INTERSTITIAL LUNG DISEASE [None]
  - RESPIRATORY DISTRESS [None]
